FAERS Safety Report 19480367 (Version 5)
Quarter: 2022Q2

REPORT INFORMATION
  Report Type: Report from Study
  Country: DE (occurrence: DE)
  Receive Date: 20210701
  Receipt Date: 20220630
  Transmission Date: 20220721
  Serious: Yes (Hospitalization)
  Sender: FDA-Public Use
  Company Number: DE-LEO PHARMA-337256

PATIENT
  Sex: Male
  Weight: 86 kg

DRUGS (2)
  1. BRODALUMAB [Suspect]
     Active Substance: BRODALUMAB
     Indication: Psoriasis
     Dosage: STREGTH: 210 MG/1.5 ML
     Route: 065
     Dates: start: 20200515, end: 20210514
  2. BRODALUMAB [Suspect]
     Active Substance: BRODALUMAB
     Dosage: STREGTH: 210 MG/1.5 ML
     Route: 065
     Dates: start: 20210625, end: 20210625

REACTIONS (3)
  - Episcleritis [Recovered/Resolved]
  - Meningitis viral [Recovered/Resolved]
  - Therapy interrupted [Unknown]

NARRATIVE: CASE EVENT DATE: 20210514
